FAERS Safety Report 4688773-4 (Version None)
Quarter: 2005Q2

REPORT INFORMATION
  Report Type: 
  Country: None (occurrence: None)
  Receive Date: 20050311
  Receipt Date: 20050311
  Transmission Date: 20051028
  Serious: No
  Sender: FDA-Public Use
  Company Number: None

PATIENT
  Sex: Female
  Weight: 104.7809 kg

DRUGS (1)
  1. DILANTIN [Suspect]
     Indication: CONVULSION

REACTIONS (2)
  - DRUG INEFFECTIVE [None]
  - HYPERGLYCAEMIA [None]
